FAERS Safety Report 16067095 (Version 1)
Quarter: 2019Q1

REPORT INFORMATION
  Report Type: Report from Study
  Country: US (occurrence: US)
  Receive Date: 20190313
  Receipt Date: 20190313
  Transmission Date: 20190418
  Serious: Yes (Other)
  Sender: FDA-Public Use
  Company Number: US-MYLANLABS-2019M1023253

PATIENT
  Sex: Male

DRUGS (3)
  1. FACTOR IX [Suspect]
     Active Substance: COAGULATION FACTOR IX HUMAN
     Indication: FACTOR IX DEFICIENCY
     Dosage: UNK
     Route: 065
  2. MYCOPHENOLATE MOFETIL. [Suspect]
     Active Substance: MYCOPHENOLATE MOFETIL
     Indication: FACTOR IX DEFICIENCY
     Dosage: UNK
     Route: 065
  3. RITUXIMAB. [Suspect]
     Active Substance: RITUXIMAB
     Indication: FACTOR IX DEFICIENCY
     Dosage: 375 MILLIGRAM/SQ. METER
     Route: 065

REACTIONS (2)
  - Hypersensitivity [Unknown]
  - Factor IX inhibition [Unknown]
